FAERS Safety Report 4322220-7 (Version None)
Quarter: 2004Q1

REPORT INFORMATION
  Report Type: 
  Country: None (occurrence: None)
  Receive Date: 20040323
  Receipt Date: 20040317
  Transmission Date: 20041129
  Serious: Yes (Death)
  Sender: FDA-Public Use
  Company Number: 04-03-0391

PATIENT
  Age: 53 Year
  Sex: Male

DRUGS (1)
  1. CLOZAPINE [Suspect]
     Dosage: 500 MG QD ORAL
     Route: 048
     Dates: start: 19990701, end: 20040201

REACTIONS (1)
  - MYOCARDIAL INFARCTION [None]
